FAERS Safety Report 8143665-3 (Version None)
Quarter: 2012Q1

REPORT INFORMATION
  Report Type: 
  Country: None (occurrence: None)
  Receive Date: 20120217
  Receipt Date: 20120207
  Transmission Date: 20120608
  Serious: Yes (Other)
  Sender: FDA-Public Use
  Company Number: US-UCBSA-051158

PATIENT
  Age: 14 Year
  Sex: Female

DRUGS (1)
  1. CIMZIA [Suspect]
     Indication: CROHN'S DISEASE
     Route: 058

REACTIONS (3)
  - STREPTOCOCCAL INFECTION [None]
  - ESCHERICHIA INFECTION [None]
  - STAPHYLOCOCCAL INFECTION [None]
